FAERS Safety Report 9606400 (Version 2)
Quarter: 2013Q4

REPORT INFORMATION
  Report Type: Spontaneous
  Country: US (occurrence: US)
  Receive Date: 20131008
  Receipt Date: 20131008
  Transmission Date: 20140711
  Serious: No
  Sender: FDA-Public Use
  Company Number: US-AMGEN-USASP2013045363

PATIENT
  Age: 71 Year
  Sex: Female
  Weight: 106.58 kg

DRUGS (8)
  1. PROLIA [Suspect]
     Indication: OSTEOPOROSIS POSTMENOPAUSAL
     Dosage: 60 MG/ML, Q6MO
     Route: 058
     Dates: start: 20130107, end: 20130107
  2. CALCIUM [Concomitant]
     Indication: OSTEOPOROSIS
     Dosage: 500 MG, BID
     Route: 048
  3. VITAMIN D                          /00107901/ [Concomitant]
     Dosage: 50000 IU, UNK
  4. NEXIUM                             /01479303/ [Concomitant]
     Indication: GASTROOESOPHAGEAL REFLUX DISEASE
     Dosage: 40 MG, UNK
     Route: 048
  5. B12                                /00056201/ [Concomitant]
     Dosage: 1000 UNK, QMO
     Route: 030
  6. VITAMIN D3 [Concomitant]
     Indication: OSTEOPOROSIS
     Dosage: 2000 UNK, ONE TIME DOSE
     Route: 048
  7. VITAMIN D3 [Concomitant]
     Indication: VITAMIN D DEFICIENCY
  8. KLONOPIN [Concomitant]
     Dosage: 0.5 MG, TID
     Route: 048

REACTIONS (1)
  - Nausea [Unknown]
